FAERS Safety Report 5419034-3 (Version None)
Quarter: 2007Q3

REPORT INFORMATION
  Report Type: 
  Country: None (occurrence: None)
  Receive Date: 20070820
  Receipt Date: 20070810
  Transmission Date: 20080115
  Serious: Yes (Other)
  Sender: FDA-Public Use
  Company Number: PHBS2007JP13430

PATIENT
  Age: 81 Year
  Sex: Female

DRUGS (4)
  1. DIOVAN [Suspect]
     Indication: HYPERTENSION
     Dosage: 80 MG/DAY
     Route: 048
  2. DIOVAN [Suspect]
     Dosage: 160 MG/DAY
     Route: 048
  3. CONIEL [Suspect]
     Dosage: 4 MG/DAY
     Route: 048
     Dates: end: 20070701
  4. TENORMIN [Concomitant]
     Dosage: 25 MG/DAY
     Route: 048
     Dates: start: 20070701

REACTIONS (1)
  - TACHYCARDIA [None]
